FAERS Safety Report 8208680-X (Version None)
Quarter: 2012Q1

REPORT INFORMATION
  Report Type: 
  Country: None (occurrence: None)
  Receive Date: 20120314
  Receipt Date: 20120307
  Transmission Date: 20120608
  Serious: Yes (Hospitalization)
  Sender: FDA-Public Use
  Company Number: US-BAYER-201037534NA

PATIENT
  Age: 50 Year
  Sex: Female
  Weight: 83.447 kg

DRUGS (15)
  1. BENICAR HCT [Concomitant]
  2. IBUPROFEN (ADVIL) [Concomitant]
  3. MULTIVITAMIN AND MINERAL [Concomitant]
  4. AZELEX [Concomitant]
     Indication: ACNE
  5. BENADRYL [Concomitant]
     Dosage: UNK UNK, PRN
  6. ASPIRIN [Concomitant]
  7. VERAPAMIL [Concomitant]
  8. EFFEXOR [Concomitant]
     Indication: DEPRESSION
     Dosage: 75 MG, QD
  9. EFFEXOR [Concomitant]
     Indication: PANIC ATTACK
  10. NEXIUM [Concomitant]
     Indication: GASTROOESOPHAGEAL REFLUX DISEASE
     Dosage: 20 MG, QD
  11. ALBUTEROL [Concomitant]
     Indication: ASTHMA
     Dosage: UNK UNK, PRN
  12. AXERT [Concomitant]
     Indication: MIGRAINE
  13. ALTACE [Concomitant]
  14. YASMIN [Suspect]
     Indication: MENSTRUATION IRREGULAR
     Route: 048
     Dates: start: 20040715, end: 20041121
  15. ADVAIR DISKUS 100/50 [Concomitant]
     Indication: ASTHMA

REACTIONS (6)
  - DYSPNOEA [None]
  - PLEURITIC PAIN [None]
  - PALPITATIONS [None]
  - MIGRAINE [None]
  - EMOTIONAL DISTRESS [None]
  - PULMONARY EMBOLISM [None]
